FAERS Safety Report 5751162-5 (Version None)
Quarter: 2008Q2

REPORT INFORMATION
  Report Type: 
  Country: None (occurrence: None)
  Receive Date: 20080528
  Receipt Date: 20080519
  Transmission Date: 20081010
  Serious: Yes (Other)
  Sender: FDA-Public Use
  Company Number: JP-PFIZER INC-2008036055

PATIENT
  Sex: Male

DRUGS (6)
  1. XALATAN [Suspect]
     Dosage: DAILY DOSE:1DROP-FREQ:FREQUENCY=ONCE DAILY
     Route: 031
  2. PIRENOXINE [Suspect]
  3. UNOPROSTONE ISOPROPYL [Concomitant]
     Route: 031
  4. HYALEIN [Concomitant]
     Route: 031
  5. ALL OTHER THERAPEUTIC PRODUCTS [Concomitant]
     Route: 031
  6. CYANOCOBALAMIN [Concomitant]
     Route: 031

REACTIONS (3)
  - CORNEAL DISORDER [None]
  - DISCOMFORT [None]
  - DRY EYE [None]
